FAERS Safety Report 4796840-X (Version None)
Quarter: 2005Q4

REPORT INFORMATION
  Report Type: 
  Country: None (occurrence: None)
  Receive Date: 20051011
  Receipt Date: 20051011
  Transmission Date: 20060501
  Serious: Yes (Other)
  Sender: FDA-Public Use
  Company Number: None

PATIENT
  Age: 87 Year
  Sex: Male
  Weight: 70 kg

DRUGS (6)
  1. CEFAZOLIN [Suspect]
     Indication: ARTHRITIS BACTERIAL
     Dosage: 2 GRAMS   EVERY 8 HOURS   IV
     Route: 042
     Dates: start: 20050614, end: 20050621
  2. LISINOPRIL [Concomitant]
  3. MINOXIDIL [Concomitant]
  4. ASPIRIN [Concomitant]
  5. ATORVASTATIN [Concomitant]
  6. FUROSEMIDE [Concomitant]

REACTIONS (2)
  - MYELODYSPLASTIC SYNDROME [None]
  - NEUTROPENIA [None]
